FAERS Safety Report 15206973 (Version 1)
Quarter: 2018Q3

REPORT INFORMATION
  Report Type: Spontaneous
  Country: US (occurrence: US)
  Receive Date: 20180727
  Receipt Date: 20180727
  Transmission Date: 20181010
  Serious: Yes (Other)
  Sender: FDA-Public Use
  Company Number: US-009507513-1807USA010391

PATIENT
  Age: 38 Year
  Sex: Female

DRUGS (5)
  1. REMERON [Suspect]
     Active Substance: MIRTAZAPINE
  2. TRILEPTAL [Suspect]
     Active Substance: OXCARBAZEPINE
     Dosage: 1200 MG, QD
  3. TRILEPTAL [Suspect]
     Active Substance: OXCARBAZEPINE
     Dosage: 900 MG, QD
  4. BUSPAR [Suspect]
     Active Substance: BUSPIRONE HYDROCHLORIDE
  5. TRILEPTAL [Suspect]
     Active Substance: OXCARBAZEPINE
     Indication: BIPOLAR DISORDER
     Dosage: UNK

REACTIONS (6)
  - Jaw fracture [Unknown]
  - Dizziness [Unknown]
  - Syncope [Unknown]
  - Endotracheal intubation [Unknown]
  - Feeling hot [Unknown]
  - Tooth loss [Unknown]

NARRATIVE: CASE EVENT DATE: 20180331
